FAERS Safety Report 5750303-3 (Version None)
Quarter: 2008Q2

REPORT INFORMATION
  Report Type: 
  Country: None (occurrence: None)
  Receive Date: 20080521
  Receipt Date: 20080521
  Transmission Date: 20081010
  Serious: Yes (Hospitalization)
  Sender: FDA-Public Use
  Company Number: None

PATIENT
  Age: 48 Year
  Sex: Female
  Weight: 88.4514 kg

DRUGS (1)
  1. LAMISIL [Suspect]
     Indication: NAIL DISORDER
     Dosage: 1 PILL DAILY PO
     Route: 048
     Dates: start: 20080403, end: 20080407

REACTIONS (3)
  - NO THERAPEUTIC RESPONSE [None]
  - RASH [None]
  - SKIN EXFOLIATION [None]
